FAERS Safety Report 8422599-0 (Version None)
Quarter: 2012Q2

REPORT INFORMATION
  Report Type: 
  Country: None (occurrence: None)
  Receive Date: 20120608
  Receipt Date: 20120601
  Transmission Date: 20120825
  Serious: Yes (Hospitalization, Other)
  Sender: FDA-Public Use
  Company Number: DE-ROCHE-1072136

PATIENT
  Sex: Female
  Weight: 64 kg

DRUGS (5)
  1. COPEGUS [Suspect]
     Route: 048
  2. TELAPREVIR [Suspect]
     Indication: HEPATITIS C
     Route: 048
     Dates: start: 20120225, end: 20120520
  3. PEGASYS [Suspect]
     Indication: HEPATITIS C
     Route: 058
     Dates: start: 20120225
  4. COPEGUS [Suspect]
     Indication: HEPATITIS C
     Route: 048
     Dates: start: 20120225
  5. PROVASCUL [Concomitant]
     Indication: HYPERTENSION
     Route: 048

REACTIONS (2)
  - RENAL FAILURE ACUTE [None]
  - HAEMOLYTIC ANAEMIA [None]
